FAERS Safety Report 23105035 (Version 1)
Quarter: 2023Q4

REPORT INFORMATION
  Report Type: Spontaneous
  Country: AT (occurrence: AT)
  Receive Date: 20231025
  Receipt Date: 20231025
  Transmission Date: 20240110
  Serious: Yes (Hospitalization, Other)
  Sender: FDA-Public Use
  Company Number: AT-Stemline Therapeutics, Inc.-2023ST003637

PATIENT
  Sex: Male

DRUGS (1)
  1. ELZONRIS [Suspect]
     Active Substance: TAGRAXOFUSP-ERZS
     Indication: Product used for unknown indication
     Dosage: CYCLE 1
     Route: 042

REACTIONS (3)
  - Renal failure [Recovering/Resolving]
  - Tumour lysis syndrome [Recovering/Resolving]
  - Blood pressure decreased [Recovering/Resolving]
